FAERS Safety Report 6217854-9 (Version None)
Quarter: 2009Q2

REPORT INFORMATION
  Report Type: 
  Country: None (occurrence: None)
  Receive Date: 20090608
  Receipt Date: 20090529
  Transmission Date: 20091009
  Serious: Yes (Other)
  Sender: FDA-Public Use
  Company Number: US-ROCHE-635379

PATIENT
  Sex: Female

DRUGS (2)
  1. XELODA [Suspect]
     Dosage: ROUTE: INTRAVENOUS NOS
     Route: 042
  2. ELOXATIN [Suspect]
     Dosage: ROUTE: INTRAVENOUS NOS, DURATION: A FEW MINS
     Route: 042

REACTIONS (4)
  - BACK PAIN [None]
  - HYPOTENSION [None]
  - OXYGEN SATURATION DECREASED [None]
  - RASH [None]
